FAERS Safety Report 10050870 (Version 3)
Quarter: 2014Q2

REPORT INFORMATION
  Report Type: Spontaneous
  Country: DE (occurrence: DE)
  Receive Date: 20140401
  Receipt Date: 20140507
  Transmission Date: 20141212
  Serious: Yes (Hospitalization, Other)
  Sender: FDA-Public Use
  Company Number: DE-AMGEN-DEUSP2014019207

PATIENT
  Age: 90 Year
  Sex: Female

DRUGS (1)
  1. PROLIA [Suspect]
     Indication: OSTEOPOROSIS
     Dosage: 60 MG, UNK
     Route: 058
     Dates: start: 20130703

REACTIONS (16)
  - Femoral neck fracture [Unknown]
  - Walking aid user [Unknown]
  - Tachyarrhythmia [Unknown]
  - Thyroid neoplasm [Unknown]
  - Fall [Unknown]
  - Vasodilatation [Unknown]
  - Heart valve incompetence [Unknown]
  - Ventricular hypertrophy [Unknown]
  - Peripheral pulse decreased [Unknown]
  - Atrial fibrillation [Unknown]
  - Hypocalcaemia [Unknown]
  - Pelvic cyst [Unknown]
  - Varicose vein [Unknown]
  - Mobility decreased [Unknown]
  - Hypertension [Unknown]
  - Vertigo [Unknown]
